FAERS Safety Report 4753969-X (Version None)
Quarter: 2005Q3

REPORT INFORMATION
  Report Type: 
  Country: None (occurrence: None)
  Receive Date: 20050826
  Receipt Date: 20050811
  Transmission Date: 20060218
  Serious: Yes (Hospitalization, Disabling)
  Sender: FDA-Public Use
  Company Number: 002#4#2004-00267

PATIENT
  Age: 51 Year
  Sex: Female

DRUGS (7)
  1. CHLORPHENIRAMINE MALEATE AND PHENYLPROPANOLAMINE HCL [Suspect]
     Indication: NASOPHARYNGITIS
     Dosage: ORAL
     Route: 048
  2. BC-ALLERGY SINUS COLD POWDER [Suspect]
     Indication: NASOPHARYNGITIS
     Dosage: ORAL
     Route: 048
  3. ALKA-SELTZER-PLUS-COLD [Suspect]
     Indication: NASOPHARYNGITIS
     Dosage: ORAL
     Route: 048
  4. ENTAX-LA [Suspect]
     Indication: NASOPHARYNGITIS
     Dosage: ORAL
     Route: 048
  5. WARFARIN [Concomitant]
  6. DIGOXIN [Concomitant]
  7. GEMFIBROZIL [Concomitant]

REACTIONS (6)
  - ANTICONVULSANT DRUG LEVEL BELOW THERAPEUTIC [None]
  - CAROTID ARTERY STENOSIS [None]
  - CEREBRAL HAEMATOMA [None]
  - CONVULSION [None]
  - HAEMORRHAGIC STROKE [None]
  - PROTHROMBIN TIME PROLONGED [None]
